FAERS Safety Report 18903503 (Version 1)
Quarter: 2021Q1

REPORT INFORMATION
  Report Type: Spontaneous
  Country: US (occurrence: US)
  Receive Date: 20210216
  Receipt Date: 20210216
  Transmission Date: 20210420
  Serious: Yes (Death)
  Sender: FDA-Public Use
  Company Number: None

PATIENT
  Age: 59 Year
  Sex: Female

DRUGS (17)
  1. IPRATROPIUM [Concomitant]
     Active Substance: IPRATROPIUM
  2. VALACYCLOVIR [Concomitant]
     Active Substance: VALACYCLOVIR HYDROCHLORIDE
  3. TRAZODONE [Concomitant]
     Active Substance: TRAZODONE HYDROCHLORIDE
  4. GABAPENTIN. [Concomitant]
     Active Substance: GABAPENTIN
  5. TEMAZEPAM. [Concomitant]
     Active Substance: TEMAZEPAM
  6. MOXIFLOXACIN. [Concomitant]
     Active Substance: MOXIFLOXACIN
  7. QUETIAPINE. [Concomitant]
     Active Substance: QUETIAPINE
  8. POT CHLORIDE [Concomitant]
     Active Substance: POTASSIUM CHLORIDE
  9. COLESTIPOL [Concomitant]
     Active Substance: COLESTIPOL
  10. PREDNISOLONE. [Concomitant]
     Active Substance: PREDNISOLONE
  11. DULOXETINE. [Concomitant]
     Active Substance: DULOXETINE
  12. TOBRAMYCIN. [Suspect]
     Active Substance: TOBRAMYCIN
     Indication: RESPIRATORY DISORDER
     Route: 055
  13. TOPIRAMATE. [Concomitant]
     Active Substance: TOPIRAMATE
  14. OXYCODONE [Concomitant]
     Active Substance: OXYCODONE
  15. BACLOFEN. [Concomitant]
     Active Substance: BACLOFEN
  16. TRAMADOL. [Concomitant]
     Active Substance: TRAMADOL
  17. FENOFIBRATE. [Concomitant]
     Active Substance: FENOFIBRATE

REACTIONS (1)
  - Death [None]

NARRATIVE: CASE EVENT DATE: 20210202
